FAERS Safety Report 20887355 (Version 1)
Quarter: 2022Q2

REPORT INFORMATION
  Report Type: Spontaneous
  Country: CO (occurrence: CO)
  Receive Date: 20220528
  Receipt Date: 20220528
  Transmission Date: 20220721
  Serious: Yes (Other)
  Sender: FDA-Public Use
  Company Number: CO-AMGEN-COLSP2022091661

PATIENT
  Age: 79 Year
  Sex: Male
  Weight: 52 kg

DRUGS (7)
  1. MVASI [Suspect]
     Active Substance: BEVACIZUMAB-AWWB
     Indication: Rectal cancer stage IV
     Dosage: 280 MILLIGRAM, QD
     Route: 042
     Dates: start: 20220307
  2. PEGFILGRASTIM [Suspect]
     Active Substance: PEGFILGRASTIM
     Indication: Rectal cancer stage IV
     Dosage: 6 MILLIGRAM, QD
     Route: 042
     Dates: start: 20220307
  3. LEUCOVORIN CALCIUM [Concomitant]
     Active Substance: LEUCOVORIN CALCIUM
     Indication: N-ras gene mutation
     Dosage: 636 MILLIGRAM, QD
     Route: 042
     Dates: start: 20220307
  4. FLUOROURACIL [Concomitant]
     Active Substance: FLUOROURACIL
     Indication: N-ras gene mutation
     Dosage: 2937.6 MILLIGRAM, QD
     Route: 042
     Dates: start: 20220307
  5. FOSAPREPITANT [Concomitant]
     Active Substance: FOSAPREPITANT
     Indication: N-ras gene mutation
     Dosage: 150 MILLIGRAM, QD
     Route: 042
     Dates: start: 20220307
  6. OXALIPLATIN [Concomitant]
     Active Substance: OXALIPLATIN
     Indication: N-ras gene mutation
     Dosage: 104.04 MILLIGRAM, QD
     Route: 042
     Dates: start: 20220307
  7. PALONOSETRON [Concomitant]
     Active Substance: PALONOSETRON
     Indication: N-ras gene mutation
     Dosage: 25 MILLIGRAM, QD
     Dates: start: 20220307

REACTIONS (1)
  - Haematochezia [Not Recovered/Not Resolved]

NARRATIVE: CASE EVENT DATE: 20220509
